FAERS Safety Report 4929940-1 (Version None)
Quarter: 2006Q1

REPORT INFORMATION
  Report Type: 
  Country: None (occurrence: None)
  Receive Date: 20060301
  Receipt Date: 20030605
  Transmission Date: 20060701
  Serious: Yes (Hospitalization, Disabling, Other)
  Sender: FDA-Public Use
  Company Number: US-MERCK-0306USA00895

PATIENT
  Age: 41 Year
  Sex: Female
  Weight: 81 kg

DRUGS (6)
  1. VIOXX [Suspect]
     Indication: NECK PAIN
     Route: 048
     Dates: start: 20010801
  2. VIOXX [Suspect]
     Route: 048
     Dates: start: 20010101, end: 20010101
  3. VIOXX [Suspect]
     Indication: HEADACHE
     Route: 048
     Dates: start: 20010801
  4. VIOXX [Suspect]
     Route: 048
     Dates: start: 20010101, end: 20010101
  5. CLARITIN-D [Concomitant]
     Route: 065
     Dates: start: 20010801
  6. ROBAXIN [Concomitant]
     Route: 065
     Dates: start: 20010801

REACTIONS (19)
  - ABDOMINAL PAIN [None]
  - ADVERSE EVENT [None]
  - ASTHENIA [None]
  - CHEST PAIN [None]
  - CONSTIPATION [None]
  - CSF CELL COUNT ABNORMAL [None]
  - DERMAL CYST [None]
  - DIPLOPIA [None]
  - DIZZINESS [None]
  - DYSPNOEA [None]
  - HEADACHE [None]
  - HEART RATE INCREASED [None]
  - HYPERTENSION [None]
  - MALAISE [None]
  - MENORRHAGIA [None]
  - SINUSITIS [None]
  - SWELLING [None]
  - VIRAL INFECTION [None]
  - VISION BLURRED [None]
